FAERS Safety Report 5781095-X (Version None)
Quarter: 2008Q2

REPORT INFORMATION
  Report Type: 
  Country: None (occurrence: None)
  Receive Date: 20080620
  Receipt Date: 20080610
  Transmission Date: 20081010
  Serious: Yes (Hospitalization)
  Sender: FDA-Public Use
  Company Number: JP-PFIZER INC-2008049783

PATIENT
  Age: 56 Year
  Sex: Female

DRUGS (4)
  1. SULPERAZON [Suspect]
     Indication: SEPSIS
     Dosage: DAILY DOSE:2GRAM
     Route: 042
     Dates: start: 20080524, end: 20080527
  2. CEFAZOLIN SODIUM [Suspect]
     Indication: ENDOCARDITIS
     Dosage: DAILY DOSE:2GRAM
     Route: 042
     Dates: start: 20080519, end: 20080522
  3. MEROPEN [Suspect]
     Indication: INFECTION PROPHYLAXIS
     Dosage: DAILY DOSE:1.5GRAM
     Route: 042
     Dates: start: 20080528, end: 20080602
  4. ZANTAC [Concomitant]
     Route: 042

REACTIONS (1)
  - THROMBOCYTOPENIA [None]
